FAERS Safety Report 9670664 (Version 3)
Quarter: 2014Q1

REPORT INFORMATION
  Report Type: Spontaneous
  Country: US (occurrence: US)
  Receive Date: 20131106
  Receipt Date: 20140219
  Transmission Date: 20141002
  Serious: Yes (Hospitalization, Other)
  Sender: FDA-Public Use
  Company Number: US-BRISTOL-MYERS SQUIBB COMPANY-19663749

PATIENT
  Age: 72 Year
  Sex: Female
  Weight: 84.35 kg

DRUGS (8)
  1. SPRYCEL (PH+ALL) TABS 70 MG [Suspect]
     Indication: ACUTE LYMPHOCYTIC LEUKAEMIA
     Dates: start: 201305
  2. MIRTAZAPINE [Suspect]
  3. METHOTREXATE [Suspect]
  4. BIAXIN [Suspect]
  5. PREDNISONE [Suspect]
  6. VINCRISTINE [Suspect]
  7. AMOXICILLIN [Concomitant]
     Indication: BONE GRAFT
  8. AMOXICILLIN [Concomitant]
     Indication: TOOTH EXTRACTION

REACTIONS (4)
  - Pancreatitis [Unknown]
  - Cholelithiasis [Unknown]
  - Rhinorrhoea [Unknown]
  - Tooth disorder [Unknown]
